FAERS Safety Report 15755404 (Version 1)
Quarter: 2018Q4

REPORT INFORMATION
  Report Type: Spontaneous
  Country: PT (occurrence: PT)
  Receive Date: 20181224
  Receipt Date: 20181224
  Transmission Date: 20190205
  Serious: Yes (Death)
  Sender: FDA-Public Use
  Company Number: PT-PROVELL PHARMACEUTICALS-2060538

PATIENT
  Age: 30 Year
  Sex: Female

DRUGS (1)
  1. EUTHYROX [Suspect]
     Active Substance: LEVOTHYROXINE SODIUM
     Indication: PRODUCT USED FOR UNKNOWN INDICATION
     Route: 048
     Dates: end: 20170116

REACTIONS (5)
  - Fatigue [Fatal]
  - Influenza [Fatal]
  - Rash [Fatal]
  - Leukaemia [Fatal]
  - Rash macular [Fatal]

NARRATIVE: CASE EVENT DATE: 2016
